FAERS Safety Report 6243672-1 (Version None)
Quarter: 2009Q2

REPORT INFORMATION
  Report Type: 
  Country: None (occurrence: None)
  Receive Date: 20090624
  Receipt Date: 20090622
  Transmission Date: 20091009
  Serious: Yes (Life-Threatening, Hospitalization)
  Sender: FDA-Public Use
  Company Number: HQWYE724409FEB06

PATIENT
  Sex: Female

DRUGS (21)
  1. SIROLIMUS [Suspect]
     Indication: PROPHYLAXIS AGAINST TRANSPLANT REJECTION
     Route: 048
     Dates: start: 20040506, end: 20040501
  2. SIROLIMUS [Suspect]
     Route: 048
     Dates: start: 20040501, end: 20040514
  3. DACLIZUMAB [Concomitant]
     Indication: PROPHYLAXIS AGAINST TRANSPLANT REJECTION
     Dosage: 110 MG-SINGLE DOSE
     Route: 042
     Dates: start: 20040506, end: 20040506
  4. MYCOPHENOLATE MOFETIL [Suspect]
     Indication: PROPHYLAXIS AGAINST TRANSPLANT REJECTION
     Route: 048
     Dates: start: 20040506, end: 20040514
  5. MYCOPHENOLATE MOFETIL [Suspect]
     Route: 048
     Dates: start: 20040923
  6. METHYLPREDNISOLONE [Suspect]
     Indication: PROPHYLAXIS AGAINST TRANSPLANT REJECTION
     Dosage: 500 MG
     Route: 042
     Dates: start: 20040506, end: 20040506
  7. METHYLPREDNISOLONE [Suspect]
     Route: 042
     Dates: start: 20040507, end: 20040515
  8. PREDNISONE [Suspect]
     Indication: PROPHYLAXIS AGAINST TRANSPLANT REJECTION
     Route: 048
     Dates: start: 20040513, end: 20040513
  9. PREDNISONE [Suspect]
     Route: 048
     Dates: start: 20040514, end: 20040515
  10. PREDNISONE [Suspect]
     Route: 048
     Dates: start: 20040518
  11. CEFEPIME [Concomitant]
     Dosage: NOT PROVIDED
     Route: 065
     Dates: start: 20040519, end: 20040526
  12. NITROGLICERINA [Concomitant]
     Dosage: NOT PROVIDED
     Route: 065
     Dates: start: 20040510
  13. TEICOPLANIN [Concomitant]
     Dosage: NOT PROVIDED
     Route: 065
     Dates: start: 20040509, end: 20040520
  14. METOPROLOL SUCCINATE [Concomitant]
     Dosage: NOT PROVIDED
     Route: 065
     Dates: start: 20040523
  15. SULFAMETHOXAZOLE AND TRIMETHOPRIM [Concomitant]
     Dosage: NOT PROVIDED
     Route: 065
     Dates: start: 20040524, end: 20041104
  16. TACROLIMUS [Suspect]
     Indication: PROPHYLAXIS AGAINST TRANSPLANT REJECTION
     Route: 048
     Dates: start: 20040517
  17. AMOXICILLIN TRIHYDRATE/CLAVULANIC ACID [Concomitant]
     Dosage: NOT PROVIDED
     Dates: start: 20040506, end: 20040808
  18. CEFEPIME [Concomitant]
     Dosage: NOT PROVIDED
     Dates: start: 20040509, end: 20040526
  19. CEFTRIAXONE [Concomitant]
     Dosage: NOT PROVIDED
     Dates: start: 20040603, end: 20040611
  20. EPOGEN [Concomitant]
     Dosage: NOT PROVIDED
     Dates: start: 20040518, end: 20040612
  21. AMLODIPINE BESYLATE [Concomitant]
     Dosage: NOT PROVIDED
     Route: 065
     Dates: start: 20040508

REACTIONS (3)
  - HERPES ZOSTER [None]
  - INTERSTITIAL LUNG DISEASE [None]
  - POST HERPETIC NEURALGIA [None]
